FAERS Safety Report 25648715 (Version 1)
Quarter: 2025Q3

REPORT INFORMATION
  Report Type: Other
  Country: GB (occurrence: GB)
  Receive Date: 20250806
  Receipt Date: 20250806
  Transmission Date: 20251020
  Serious: Yes (Hospitalization, Other)
  Sender: SIEMENS
  Company Number: GB-ORG100003357-20250009

PATIENT
  Age: 63 Year
  Sex: Female

DRUGS (1)
  1. FLUDEOXYGLUCOSE F-18 [Suspect]
     Active Substance: FLUDEOXYGLUCOSE F-18
     Indication: Product use in unapproved indication
     Route: 065
     Dates: start: 20250716, end: 20250716

REACTIONS (3)
  - Blood sodium decreased [Unknown]
  - Nausea [Unknown]
  - Pyrexia [Unknown]

NARRATIVE: CASE EVENT DATE: 20250716
